FAERS Safety Report 11006314 (Version 1)
Quarter: 2015Q2

REPORT INFORMATION
  Report Type: Report from Study
  Country: DE (occurrence: DE)
  Receive Date: 20150409
  Receipt Date: 20150409
  Transmission Date: 20150821
  Serious: Yes (Death)
  Sender: FDA-Public Use
  Company Number: DE-MYLANLABS-2015M1011615

PATIENT

DRUGS (11)
  1. LEVAMISOLE [Suspect]
     Active Substance: LEVAMISOLE
     Route: 050
  2. LIDOCAINE. [Suspect]
     Active Substance: LIDOCAINE
     Route: 050
  3. NORDAZEPAM [Concomitant]
     Active Substance: NORDAZEPAM
     Route: 065
  4. HYDROXYZINE [Suspect]
     Active Substance: HYDROXYZINE\HYDROXYZINE HYDROCHLORIDE
     Route: 050
  5. CAFFEINE. [Concomitant]
     Active Substance: CAFFEINE
     Route: 065
  6. NOSCAPINE [Concomitant]
     Active Substance: NOSCAPINE
     Route: 065
  7. DIAZEPAM. [Concomitant]
     Active Substance: DIAZEPAM
     Route: 065
  8. PARACETAMOL [Concomitant]
     Active Substance: ACETAMINOPHEN
     Route: 065
  9. DILTIAZEM [Suspect]
     Active Substance: DILTIAZEM
     Route: 050
  10. PHENACETIN [Suspect]
     Active Substance: PHENACETIN
     Route: 050
  11. PAPAVERINE [Concomitant]
     Active Substance: PAPAVERINE
     Route: 065

REACTIONS (1)
  - Death [Fatal]
